FAERS Safety Report 18704464 (Version 1)
Quarter: 2021Q1

REPORT INFORMATION
  Report Type: Not Available
  Country: None (occurrence: None)
  Receive Date: 20210105
  Receipt Date: 20210105
  Transmission Date: 20210419
  Serious: Yes (Other)
  Sender: FDA-Public Use
  Company Number: US-AKORN-158747

PATIENT
  Age: 24 Year
  Sex: Female

DRUGS (1)
  1. MYORISAN [Suspect]
     Active Substance: ISOTRETINOIN

REACTIONS (6)
  - Dry skin [Unknown]
  - Feeling abnormal [Unknown]
  - Mental impairment [Unknown]
  - Fatigue [Unknown]
  - Lip dry [Unknown]
  - Depression [Unknown]
